FAERS Safety Report 14679720 (Version 2)
Quarter: 2023Q4

REPORT INFORMATION
  Report Type: Report from Study
  Country: CN (occurrence: CN)
  Receive Date: 20180326
  Receipt Date: 20231102
  Transmission Date: 20240110
  Serious: Yes (Hospitalization)
  Sender: FDA-Public Use
  Company Number: CN-KYOWAKIRIN-2018WRD-REG000107

PATIENT
  Age: 60 Year
  Sex: Male

DRUGS (13)
  1. CINACALCET HYDROCHLORIDE [Suspect]
     Active Substance: CINACALCET HYDROCHLORIDE
     Indication: Hyperparathyroidism secondary
     Dosage: 25 MILLIGRAM, QD
     Route: 048
     Dates: start: 20170724, end: 20170820
  2. CINACALCET HYDROCHLORIDE [Suspect]
     Active Substance: CINACALCET HYDROCHLORIDE
     Dosage: 50 MILLIGRAM, QD
     Route: 048
     Dates: start: 20170821
  3. METOPROLOL [Concomitant]
     Active Substance: METOPROLOL
     Indication: Hypertension
     Dosage: 25 MILLIGRAM, BID
     Route: 065
     Dates: start: 1992
  4. CALCITRIOL [Concomitant]
     Active Substance: CALCITRIOL
     Indication: Hyperparathyroidism
     Dosage: 0.25 MICROGRAM, QD
     Route: 065
     Dates: start: 2014
  5. CALCIUM CARBONATE [Concomitant]
     Active Substance: CALCIUM CARBONATE
     Indication: Hyperphosphataemia
     Dosage: 2 GRAM, TID
     Route: 065
     Dates: start: 2014
  6. CAPTOPRIL [Concomitant]
     Active Substance: CAPTOPRIL
     Indication: Hypertension
     Dosage: 25 MG, Q8H
     Route: 065
     Dates: start: 2008
  7. CLONIDINE [Concomitant]
     Active Substance: CLONIDINE
     Indication: Hypertension
     Dosage: 75 MICROGRAM, TID
     Route: 065
     Dates: start: 2013
  8. NIFEDIPINE [Concomitant]
     Active Substance: NIFEDIPINE
     Indication: Hypertension
     Dosage: 20 MILLIGRAM, BID
     Route: 065
     Dates: start: 20171108
  9. MICONAZOLE [Concomitant]
     Active Substance: MICONAZOLE
     Indication: Psoriasis
     Dosage: 0.5 GRAM, BID
     Route: 065
     Dates: start: 20171130
  10. VITAMIN A [Concomitant]
     Active Substance: VITAMIN A
     Indication: Psoriasis
     Dosage: 0.5 GRAM, BID
     Route: 065
     Dates: start: 20171103
  11. UREA [Concomitant]
     Active Substance: UREA
     Indication: Psoriasis
     Dosage: 0.5 GRAM, BID
     Route: 065
     Dates: start: 20171130
  12. ASPIRIN [Concomitant]
     Active Substance: ASPIRIN
     Indication: Thrombosis prophylaxis
     Dosage: 0.1 G, QD
     Route: 065
     Dates: start: 2008
  13. MUCOPOLYSACCHARIDE POLYSULFATE [Concomitant]
     Indication: Thrombosis prophylaxis
     Dosage: 0.1 G, PRN
     Route: 065
     Dates: start: 20180110

REACTIONS (1)
  - Psoriasis [Unknown]

NARRATIVE: CASE EVENT DATE: 20180313
